FAERS Safety Report 9238545 (Version 1)
Quarter: 2013Q2

REPORT INFORMATION
  Report Type: Spontaneous
  Country: JP (occurrence: JP)
  Receive Date: 20130418
  Receipt Date: 20130418
  Transmission Date: 20140414
  Serious: Yes (Death, Other)
  Sender: FDA-Public Use
  Company Number: JP-ASTELLAS-2011JP006698

PATIENT
  Age: 54 Year
  Sex: Male
  Weight: 59.2 kg

DRUGS (33)
  1. GRACEPTOR [Suspect]
     Indication: PROPHYLAXIS AGAINST GRAFT VERSUS HOST DISEASE
     Dosage: 1.5 MG, UID/QD
     Route: 048
     Dates: start: 20110108, end: 20110111
  2. GRACEPTOR [Suspect]
     Indication: GRAFT VERSUS HOST DISEASE
     Dosage: 1 MG, UID/QD
     Route: 048
     Dates: start: 20110112, end: 20110113
  3. GRACEPTOR [Suspect]
     Dosage: 1 MG, UID/QD
     Route: 048
     Dates: start: 20110216, end: 20110218
  4. GRACEPTOR [Suspect]
     Dosage: 0.5 MG, UID/QD
     Route: 048
     Dates: start: 20110219, end: 20110221
  5. PROGRAF [Suspect]
     Indication: GRAFT VERSUS HOST DISEASE
     Dosage: 0.4 MG, UID/QD
     Route: 042
     Dates: start: 20101124, end: 20110107
  6. PROGRAF [Suspect]
     Indication: STEM CELL TRANSPLANT
     Dosage: UNK
     Route: 042
     Dates: start: 20110209, end: 20110215
  7. PROGRAF [Suspect]
     Indication: PROPHYLAXIS AGAINST GRAFT VERSUS HOST DISEASE
  8. MAXIPIME [Suspect]
     Indication: INFECTION PROPHYLAXIS
     Dosage: 1 G, BID
     Route: 041
     Dates: start: 20110108, end: 20110113
  9. MAXIPIME [Suspect]
     Indication: SEPSIS
     Dosage: 1 G, BID
     Route: 041
     Dates: start: 20110220
  10. VFEND [Concomitant]
     Indication: BRONCHOPULMONARY ASPERGILLOSIS
     Dosage: 200 MG, BID
     Route: 048
     Dates: start: 20101229
  11. PARIET [Concomitant]
     Dosage: 10 MG, UID/QD
     Route: 048
     Dates: start: 20101105
  12. ZOVIRAX [Concomitant]
     Dosage: 200 MG, BID
     Route: 048
     Dates: start: 20101225
  13. MIYA BM [Concomitant]
     Indication: PROPHYLAXIS AGAINST DIARRHOEA
     Dosage: UNK
     Route: 048
     Dates: start: 20110105, end: 20110221
  14. AMLODIN [Concomitant]
     Indication: HYPERTENSION
     Dosage: 2.5 MG, UID/QD
     Route: 048
     Dates: start: 20110106, end: 20110318
  15. RESPLEN [Concomitant]
     Indication: BRONCHOPULMONARY ASPERGILLOSIS
     Dosage: 20 MG, TID
     Route: 048
     Dates: start: 20110108, end: 20110118
  16. LENDORMIN [Concomitant]
     Indication: INSOMNIA
     Dosage: 0.25 MG, UID/QD
     Route: 048
     Dates: start: 20101206
  17. EURODIN [Concomitant]
     Indication: INSOMNIA
     Dosage: 1 MG, UID/QD
     Route: 048
  18. CORTRIL [Concomitant]
     Dosage: 20 MG, UID/QD
     Route: 048
     Dates: start: 20110108, end: 20110121
  19. PREDNISOLONE [Concomitant]
     Indication: GRAFT VERSUS HOST DISEASE
     Dosage: 10 MG, BID
     Route: 048
     Dates: start: 20110106, end: 20110111
  20. PREDNISOLONE [Concomitant]
     Dosage: 25 MG, BID
     Route: 048
     Dates: start: 20110217
  21. BAKTAR [Concomitant]
     Dosage: 1 DF, UID/QD
     Route: 048
     Dates: start: 20110110, end: 20110113
  22. DENOSINE [Concomitant]
     Indication: CYTOMEGALOVIRUS INFECTION
     Dosage: 400 MG, UID/QD
     Route: 041
     Dates: start: 20110108, end: 20110215
  23. SOLU MEDROL [Concomitant]
     Indication: GRAFT VERSUS HOST DISEASE
     Dosage: 70 MG, UNKNOWN/D
     Route: 041
     Dates: start: 20110120, end: 20110216
  24. FUNGUARD [Concomitant]
     Indication: BRONCHOPULMONARY ASPERGILLOSIS
     Dosage: 150 MG, UID/QD
     Route: 041
     Dates: start: 20110220
  25. VANCOMYCIN [Concomitant]
     Indication: PSEUDOMEMBRANOUS COLITIS
     Dosage: 0.125 G, QID
     Route: 048
     Dates: start: 20110114, end: 20110120
  26. VANCOMYCIN [Concomitant]
     Indication: INFECTION PROPHYLAXIS
     Dosage: 500 MG, UID/QD
     Route: 041
     Dates: start: 20110120, end: 20110131
  27. VANCOMYCIN [Concomitant]
     Indication: SEPSIS
     Dosage: 500 MG, UID/QD
     Route: 041
     Dates: start: 20110221
  28. MEROPEN [Concomitant]
     Indication: INFECTION PROPHYLAXIS
     Dosage: 0.5 G, UID/QD
     Route: 041
     Dates: start: 20110116, end: 20110129
  29. OMEGACIN [Concomitant]
     Indication: INFECTION PROPHYLAXIS
     Dosage: 0.6 G, BID
     Route: 041
     Dates: start: 20110131, end: 20110208
  30. METHOTREXATE [Concomitant]
     Route: 065
  31. FLUDARA [Concomitant]
     Indication: PREMEDICATION
     Route: 065
  32. ALKERAN                            /00006401/ [Concomitant]
     Indication: PREMEDICATION
     Route: 065
  33. CYLOCIDE [Concomitant]
     Indication: PREMEDICATION
     Route: 065

REACTIONS (9)
  - Drug ineffective [Unknown]
  - Graft versus host disease [Recovering/Resolving]
  - Sepsis [Fatal]
  - Renal impairment [Recovering/Resolving]
  - Sepsis [Recovered/Resolved]
  - Klebsiella infection [Recovered/Resolved]
  - Streptococcal sepsis [Recovered/Resolved]
  - Pseudomembranous colitis [Recovered/Resolved]
  - Cytomegalovirus enterocolitis [Recovered/Resolved]
